FAERS Safety Report 11008555 (Version 2)
Quarter: 2015Q3

REPORT INFORMATION
  Report Type: Spontaneous
  Country: US (occurrence: US)
  Receive Date: 20150410
  Receipt Date: 20150909
  Transmission Date: 20151125
  Serious: Yes (Hospitalization, Other)
  Sender: FDA-Public Use
  Company Number: US-MERCK-1504USA003830

PATIENT
  Sex: Male
  Weight: 102.4 kg

DRUGS (1)
  1. JANUVIA [Suspect]
     Active Substance: SITAGLIPTIN PHOSPHATE
     Indication: TYPE 2 DIABETES MELLITUS
     Dosage: 100 MG, UNK
     Route: 048
     Dates: start: 20121022, end: 20130503

REACTIONS (10)
  - Bile duct cancer [Unknown]
  - Pancreaticoduodenectomy [Unknown]
  - Myocardial infarction [Unknown]
  - Biliary tract disorder [Unknown]
  - Pancreatic carcinoma [Unknown]
  - Gallbladder disorder [Unknown]
  - Depression [Unknown]
  - Cholelithiasis [Unknown]
  - Cholecystitis [Unknown]
  - Pancreatitis acute [Unknown]

NARRATIVE: CASE EVENT DATE: 201401
